FAERS Safety Report 7633123-4 (Version None)
Quarter: 2011Q3

REPORT INFORMATION
  Report Type: 
  Country: None (occurrence: None)
  Receive Date: 20110725
  Receipt Date: 20110722
  Transmission Date: 20111222
  Serious: Yes (Death)
  Sender: FDA-Public Use
  Company Number: PHFR2011IE00917

PATIENT
  Sex: Female

DRUGS (5)
  1. HALOPERIDOL [Concomitant]
     Dosage: 20MG
     Route: 048
  2. BISOPROLOL [Concomitant]
     Dosage: 5 MG, UNK
     Route: 048
  3. PROCORALAN [Suspect]
     Dosage: 15MG
     Route: 048
  4. CLOZAPINE [Suspect]
     Indication: SCHIZOPHRENIA
     Dosage: UNK
     Route: 048
     Dates: start: 20090520, end: 20110122
  5. XENICAL [Concomitant]
     Dosage: 360 MG, UNK
     Route: 048

REACTIONS (3)
  - PULMONARY EMBOLISM [None]
  - DYSPNOEA [None]
  - TACHYCARDIA [None]
